FAERS Safety Report 7698537 (Version 6)
Quarter: 2013Q2

REPORT INFORMATION
  Report Type: Spontaneous
  Country: US (occurrence: US)
  Receive Date: 20101208
  Receipt Date: 20130612
  Transmission Date: 20140414
  Serious: Yes (Hospitalization, Other)
  Sender: FDA-Public Use
  Company Number: US-BAYER-2010-001708

PATIENT
  Age: 13 Year
  Sex: Female
  Weight: 54.42 kg

DRUGS (2)
  1. YAZ [Suspect]
     Indication: DYSMENORRHOEA
     Dosage: UNK
     Dates: start: 200801, end: 200909
  2. YAZ [Suspect]
     Indication: DYSMENORRHOEA
     Dosage: UNK
     Dates: start: 200801, end: 200909

REACTIONS (3)
  - Gallbladder disorder [None]
  - Injury [None]
  - Cholecystitis chronic [None]
